FAERS Safety Report 20439854 (Version 14)
Quarter: 2024Q2

REPORT INFORMATION
  Report Type: Report from Study
  Country: CO (occurrence: CO)
  Receive Date: 20220207
  Receipt Date: 20240522
  Transmission Date: 20240716
  Serious: Yes (Hospitalization, Other)
  Sender: FDA-Public Use
  Company Number: CO-TAKEDA-2022TUS007958

PATIENT
  Age: 34 Year
  Sex: Female
  Weight: 72 kg

DRUGS (2)
  1. VEDOLIZUMAB [Suspect]
     Active Substance: VEDOLIZUMAB
     Indication: Colitis ulcerative
     Dosage: 300 MILLIGRAM
     Route: 042
     Dates: start: 20210922
  2. VEDOLIZUMAB [Suspect]
     Active Substance: VEDOLIZUMAB
     Dosage: 300 MILLIGRAM, Q4WEEKS
     Route: 042

REACTIONS (22)
  - Haematochezia [Unknown]
  - Diarrhoea [Unknown]
  - Haemorrhage [Unknown]
  - Colitis ulcerative [Unknown]
  - Abdominal pain [Unknown]
  - Abdominal discomfort [Unknown]
  - Treatment noncompliance [Unknown]
  - Weight increased [Unknown]
  - Alopecia [Unknown]
  - Vaginal discharge [Unknown]
  - Vaginal pH abnormal [Unknown]
  - Influenza like illness [Recovering/Resolving]
  - Dysphonia [Recovering/Resolving]
  - Drug ineffective [Unknown]
  - Product administration error [Unknown]
  - Productive cough [Not Recovered/Not Resolved]
  - Dizziness [Unknown]
  - Rhinorrhoea [Recovering/Resolving]
  - Pyrexia [Recovering/Resolving]
  - Fatigue [Unknown]
  - Pain in extremity [Unknown]
  - Oropharyngeal pain [Unknown]

NARRATIVE: CASE EVENT DATE: 20220131
